FAERS Safety Report 7045829-9 (Version None)
Quarter: 2010Q4

REPORT INFORMATION
  Report Type: 
  Country: None (occurrence: None)
  Receive Date: 20101014
  Receipt Date: 20101005
  Transmission Date: 20110411
  Serious: Yes (Hospitalization, Other)
  Sender: FDA-Public Use
  Company Number: US-ASTRAZENECA-2010SE39537

PATIENT
  Age: 77 Year
  Sex: Male

DRUGS (12)
  1. CRESTOR [Suspect]
     Indication: HYPERLIPIDAEMIA
     Route: 048
     Dates: start: 20070801, end: 20100801
  2. CRESTOR [Suspect]
     Indication: CORONARY ARTERY DISEASE
     Route: 048
     Dates: start: 20070801, end: 20100801
  3. WARFARIN SODIUM [Concomitant]
     Dates: start: 20071101, end: 20100712
  4. IRON [Concomitant]
     Dates: start: 20080701, end: 20100712
  5. EFFEXOR [Concomitant]
  6. FERROUS SULFATE TAB [Concomitant]
  7. DIGOXIN [Concomitant]
     Dates: start: 20071101
  8. NIFEDIPINE [Concomitant]
     Dates: start: 20081201
  9. SODIUM BICARB [Concomitant]
     Dates: start: 20100708, end: 20100913
  10. MIRALAX [Concomitant]
  11. ARANESP [Concomitant]
     Dates: start: 20090101
  12. TRAZODONE HCL [Concomitant]
     Dates: start: 20080901

REACTIONS (6)
  - BLOOD CREATININE INCREASED [None]
  - CARBON DIOXIDE DECREASED [None]
  - HYPERKALAEMIA [None]
  - MALAISE [None]
  - METABOLIC ACIDOSIS [None]
  - RENAL FAILURE ACUTE [None]
